FAERS Safety Report 22541815 (Version 1)
Quarter: 2023Q2

REPORT INFORMATION
  Report Type: Spontaneous
  Country: GB (occurrence: GB)
  Receive Date: 20230609
  Receipt Date: 20230609
  Transmission Date: 20230722
  Serious: Yes (Other)
  Sender: FDA-Public Use
  Company Number: GB-FERRINGPH-2020FE01723

PATIENT
  Age: 7 Year
  Sex: Female

DRUGS (2)
  1. SOMATROPIN [Suspect]
     Active Substance: SOMATROPIN
     Indication: Growth hormone deficiency
     Dosage: UNK UNK, UNKNOWN
     Route: 065
  2. SOMATROPIN [Suspect]
     Active Substance: SOMATROPIN

REACTIONS (4)
  - Haemorrhage [Unknown]
  - Injection site bruising [Unknown]
  - Injection site haemorrhage [Unknown]
  - Product dose omission issue [Unknown]
